FAERS Safety Report 23136900 (Version 3)
Quarter: 2024Q1

REPORT INFORMATION
  Report Type: Spontaneous
  Country: PL (occurrence: PL)
  Receive Date: 20231102
  Receipt Date: 20240116
  Transmission Date: 20240410
  Serious: Yes (Death, Life-Threatening)
  Sender: FDA-Public Use
  Company Number: PL-BEIGENE-BGN-2023-012691

PATIENT

DRUGS (1)
  1. BRUKINSA [Suspect]
     Active Substance: ZANUBRUTINIB
     Indication: Product used for unknown indication
     Dosage: 80 MILLIGRAM, QD
     Dates: start: 20230928, end: 20231012

REACTIONS (1)
  - Anaemia [Fatal]
